FAERS Safety Report 19403991 (Version 1)
Quarter: 2021Q2

REPORT INFORMATION
  Report Type: Spontaneous
  Country: US (occurrence: US)
  Receive Date: 20210611
  Receipt Date: 20210611
  Transmission Date: 20210717
  Serious: No
  Sender: FDA-Public Use
  Company Number: None

PATIENT
  Age: 60 Year
  Sex: Male
  Weight: 94.05 kg

DRUGS (13)
  1. METFORMIN [Concomitant]
     Active Substance: METFORMIN HYDROCHLORIDE
  2. AMLODIPINE [Concomitant]
     Active Substance: AMLODIPINE BESYLATE
  3. LISINOPRIL. [Concomitant]
     Active Substance: LISINOPRIL
  4. HCTZ [Concomitant]
     Active Substance: HYDROCHLOROTHIAZIDE
  5. MULTIVITAMIN [Concomitant]
     Active Substance: VITAMINS
  6. CARVIDILOL [Concomitant]
  7. VASCEPA [Concomitant]
     Active Substance: ICOSAPENT ETHYL
  8. FISH OIL [Concomitant]
     Active Substance: FISH OIL
  9. PRALUENT [Suspect]
     Active Substance: ALIROCUMAB
     Indication: LIPIDS INCREASED
     Dosage: ?QUANTITY:1 INJECTION(S);?OTHER FREQUENCY:EVERY 2 WEEKS;?
     Route: 030
     Dates: start: 20200601
  10. TRINTELLIX [Concomitant]
     Active Substance: VORTIOXETINE HYDROBROMIDE
  11. ZYRTEC [Concomitant]
     Active Substance: CETIRIZINE HYDROCHLORIDE
  12. JARDIANCE [Concomitant]
     Active Substance: EMPAGLIFLOZIN
  13. BABY ASPIRIN [Concomitant]
     Active Substance: ASPIRIN

REACTIONS (1)
  - Injection site rash [None]

NARRATIVE: CASE EVENT DATE: 20200601
